FAERS Safety Report 8657836 (Version 2)
Quarter: 2013Q3

REPORT INFORMATION
  Report Type: Spontaneous
  Country: GB (occurrence: None)
  Receive Date: 20120622
  Receipt Date: 20130705
  Transmission Date: 20140515
  Serious: Yes (Hospitalization, Other)
  Sender: FDA-Public Use
  Company Number: GB-025713

PATIENT
  Age: 68 Year
  Sex: Female
  Weight: 62 kg

DRUGS (8)
  1. CHLORAMBUCIL [Suspect]
     Indication: CHRONIC LYMPHOCYTIC LEUKAEMIA
     Dosage: DAYS 1-7 OF EACH CYCLE, ORAL
     Route: 048
     Dates: start: 20091105, end: 20091207
  2. MABTHERA [Suspect]
     Indication: CHRONIC LYMPHOCYTIC LEUKAEMIA
     Dosage: INTRAVENOUS (NOT OTHERWISE SPECIFIED)
     Route: 042
     Dates: start: 20091105, end: 20091207
  3. BETAHISTINE [Concomitant]
  4. OMEPRAZOLE [Concomitant]
  5. MORPHINE [Concomitant]
  6. FYBOGEL [Concomitant]
  7. CALCIUM CARBONATE [Concomitant]
  8. ASPIRIN [Concomitant]

REACTIONS (9)
  - Loss of consciousness [None]
  - Presyncope [None]
  - Fatigue [None]
  - Palpitations [None]
  - Weight decreased [None]
  - Syncope [None]
  - Nausea [None]
  - Vomiting [None]
  - Dehydration [None]
